FAERS Safety Report 4996945-4 (Version None)
Quarter: 2006Q2

REPORT INFORMATION
  Report Type: 
  Country: None (occurrence: None)
  Receive Date: 20060508
  Receipt Date: 20060508
  Transmission Date: 20061013
  Serious: Yes (Hospitalization)
  Sender: FDA-Public Use
  Company Number: None

PATIENT
  Sex: Male
  Weight: 58.0604 kg

DRUGS (8)
  1. LENALIDOMIDE     25MG      CELGENE [Suspect]
     Indication: MULTIPLE MYELOMA
     Dosage: 25MG  QDX21 DAYS    PO
     Route: 048
     Dates: start: 20060412, end: 20060420
  2. DEXAMETHASONE 4MG TAB [Suspect]
     Indication: MULTIPLE MYELOMA
     Dosage: 40MG    D1-4, 9-12, -17-20   PO
     Route: 048
     Dates: start: 20060412, end: 20060423
  3. DECADRON [Concomitant]
  4. PROTONIX [Concomitant]
  5. COLACE [Concomitant]
  6. SENNA [Concomitant]
  7. OXYCODONE [Concomitant]
  8. MULTI-VITAMIN [Concomitant]

REACTIONS (3)
  - BACK PAIN [None]
  - CONDITION AGGRAVATED [None]
  - FATIGUE [None]
